FAERS Safety Report 6207293-9 (Version None)
Quarter: 2009Q2

REPORT INFORMATION
  Report Type: 
  Country: None (occurrence: None)
  Receive Date: 20090527
  Receipt Date: 20090527
  Transmission Date: 20091009
  Serious: Yes (Other)
  Sender: FDA-Public Use
  Company Number: None

PATIENT
  Age: 66 Year
  Sex: Male
  Weight: 136 kg

DRUGS (1)
  1. TOBRAMYCIN SULFATE INJECTION [Suspect]
     Indication: DEVICE RELATED INFECTION
     Dosage: 240MG DAILY IV
     Route: 042
     Dates: start: 20090509, end: 20090525

REACTIONS (1)
  - INFLUENZA LIKE ILLNESS [None]
